FAERS Safety Report 11522358 (Version 1)
Quarter: 2015Q3

REPORT INFORMATION
  Report Type: Spontaneous
  Country: BR (occurrence: BR)
  Receive Date: 20150918
  Receipt Date: 20150918
  Transmission Date: 20151125
  Serious: Yes (Hospitalization, Other)
  Sender: FDA-Public Use
  Company Number: BR-ABBVIE-15P-020-1465890-00

PATIENT
  Age: 57 Year
  Sex: Female
  Weight: 70 kg

DRUGS (9)
  1. CREON [Suspect]
     Active Substance: PANCRELIPASE AMYLASE\PANCRELIPASE LIPASE\PANCRELIPASE PROTEASE
     Indication: PANCREATITIS CHRONIC
     Route: 048
  2. OMEPRAZOL [Concomitant]
     Active Substance: OMEPRAZOLE
     Indication: CERVICOBRACHIAL SYNDROME
     Route: 048
     Dates: start: 2005
  3. PURAN [Concomitant]
     Active Substance: LEVOTHYROXINE SODIUM
     Indication: AUTOIMMUNE THYROIDITIS
     Route: 048
     Dates: start: 2008
  4. BROMAZEPAM [Concomitant]
     Active Substance: BROMAZEPAM
     Indication: ANXIETY
     Route: 048
     Dates: start: 201504
  5. FLUOXETINE [Concomitant]
     Active Substance: FLUOXETINE\FLUOXETINE HYDROCHLORIDE
     Indication: DEPRESSION
     Route: 048
     Dates: start: 201504
  6. CREON [Suspect]
     Active Substance: PANCRELIPASE AMYLASE\PANCRELIPASE LIPASE\PANCRELIPASE PROTEASE
     Route: 048
  7. STUGERON [Concomitant]
     Active Substance: CINNARIZINE
     Indication: CERVICOBRACHIAL SYNDROME
     Dates: start: 2009
  8. DIMENHYDRINATE W/PYRIDOXINE HYDROCHLORIDE [Concomitant]
     Indication: CERVICOBRACHIAL SYNDROME
     Dosage: FORM STRENGTH: 50 MG+10 MG; AT NIGHT (DAILY DOSE: 50 MG+10 MG)
     Route: 048
     Dates: start: 2008
  9. CETOPROFENO [Concomitant]
     Indication: CERVICOBRACHIAL SYNDROME
     Route: 048
     Dates: start: 2009

REACTIONS (19)
  - Malaise [Not Recovered/Not Resolved]
  - Dyspepsia [Not Recovered/Not Resolved]
  - Bedridden [Unknown]
  - Nausea [Not Recovered/Not Resolved]
  - Insomnia [Not Recovered/Not Resolved]
  - Back pain [Unknown]
  - Dark circles under eyes [Unknown]
  - Thyroid neoplasm [Unknown]
  - Steatorrhoea [Recovered/Resolved]
  - Hypoaesthesia [Not Recovered/Not Resolved]
  - Dehydration [Unknown]
  - Abdominal distension [Not Recovered/Not Resolved]
  - Pyrexia [Recovered/Resolved]
  - Product use issue [Unknown]
  - Eructation [Not Recovered/Not Resolved]
  - Enteritis infectious [Unknown]
  - Lymphoma [Recovering/Resolving]
  - Weight increased [Not Recovered/Not Resolved]
  - Diarrhoea [Recovered/Resolved]

NARRATIVE: CASE EVENT DATE: 2013
